FAERS Safety Report 8761678 (Version 2)
Quarter: 2012Q4

REPORT INFORMATION
  Report Type: Spontaneous
  Country: FR (occurrence: None)
  Receive Date: 20120821
  Receipt Date: 20120823
  Transmission Date: 20130627
  Serious: Yes (Hospitalization)
  Sender: FDA-Public Use
  Company Number: 1376447

PATIENT
  Age: 56 Year
  Sex: Male

DRUGS (7)
  1. PACLITAXEL [Suspect]
     Indication: ADENOCARCINOMA LUNG
     Route: 041
     Dates: start: 20050613, end: 20050704
  2. CISPLATINE [Suspect]
     Indication: ADENOCARCINOMA LUNG
     Dosage: (not otherwise specified)
     Route: 041
     Dates: start: 20050204, end: 20050324
  3. GEMZAR [Suspect]
     Indication: ADENOCARCINOMA LUNG
     Route: 041
     Dates: start: 20050204, end: 20050401
  4. PARAPLATIN [Suspect]
     Indication: ADENOCARCINOMA LUNG
     Route: 041
     Dates: start: 20050613, end: 20050704
  5. SERETIDE DISCUS [Concomitant]
  6. FORADIL [Concomitant]
  7. DOLIPRANE [Concomitant]

REACTIONS (3)
  - Pancytopenia [None]
  - Acute myeloid leukaemia [None]
  - Dyspnoea [None]
